FAERS Safety Report 7913455-2 (Version None)
Quarter: 2011Q4

REPORT INFORMATION
  Report Type: 
  Country: None (occurrence: None)
  Receive Date: 20111115
  Receipt Date: 20111103
  Transmission Date: 20120403
  Serious: Yes (Other)
  Sender: FDA-Public Use
  Company Number: NL-AMGEN-NLDSP2011055745

PATIENT
  Age: 35 Year
  Sex: Female

DRUGS (3)
  1. ARAVA [Suspect]
     Indication: RHEUMATOID ARTHRITIS
     Dosage: 20 MG, 1X/DAY
     Route: 064
     Dates: start: 20091201, end: 20110602
  2. ENBREL [Suspect]
     Dosage: 50 MG, 1X/DAY
     Route: 064
     Dates: start: 20100502, end: 20110602
  3. ENBREL [Suspect]
     Indication: RHEUMATOID ARTHRITIS
     Dosage: 50 MG, 1X/DAY
     Route: 064
     Dates: start: 20100502, end: 20110602

REACTIONS (1)
  - ABORTION SPONTANEOUS [None]
